FAERS Safety Report 8529224-9 (Version None)
Quarter: 2012Q3

REPORT INFORMATION
  Report Type: 
  Country: None (occurrence: None)
  Receive Date: 20120723
  Receipt Date: 20120709
  Transmission Date: 20120928
  Serious: Yes (Hospitalization, Other)
  Sender: FDA-Public Use
  Company Number: IN-RANBAXY-2012RR-57561

PATIENT
  Age: 17 Year
  Sex: Male

DRUGS (2)
  1. DOXYCYCLINE [Suspect]
     Indication: ANTIBIOTIC THERAPY
     Dosage: UNK
     Route: 048
  2. DOXYCYCLINE [Suspect]
     Indication: ACNE

REACTIONS (1)
  - STEVENS-JOHNSON SYNDROME [None]
